FAERS Safety Report 26126396 (Version 1)
Quarter: 2025Q4

REPORT INFORMATION
  Report Type: Spontaneous
  Country: EU (occurrence: EU)
  Receive Date: 20251205
  Receipt Date: 20251205
  Transmission Date: 20260117
  Serious: Yes (Death)
  Sender: MYLAN
  Company Number: None

PATIENT
  Age: 64 Year
  Sex: Male

DRUGS (8)
  1. TRAMADOL [Suspect]
     Active Substance: TRAMADOL
     Indication: Product used for unknown indication
     Dosage: UNKNOWN
  2. TRAMADOL [Suspect]
     Active Substance: TRAMADOL
     Dosage: UNKNOWN
     Route: 048
  3. TRAMADOL [Suspect]
     Active Substance: TRAMADOL
     Dosage: UNKNOWN
     Route: 048
  4. TRAMADOL [Suspect]
     Active Substance: TRAMADOL
     Dosage: UNKNOWN
  5. CITALOPRAM [Suspect]
     Active Substance: CITALOPRAM
     Indication: Product used for unknown indication
     Dosage: UNK (UNKNOWN)
  6. CITALOPRAM [Suspect]
     Active Substance: CITALOPRAM
     Dosage: UNK (UNKNOWN)
     Route: 048
  7. CITALOPRAM [Suspect]
     Active Substance: CITALOPRAM
     Dosage: UNK (UNKNOWN)
     Route: 048
  8. CITALOPRAM [Suspect]
     Active Substance: CITALOPRAM
     Dosage: UNK (UNKNOWN)

REACTIONS (2)
  - Toxicity to various agents [Fatal]
  - Cardiac arrest [Fatal]
